FAERS Safety Report 6286926-5 (Version None)
Quarter: 2009Q3

REPORT INFORMATION
  Report Type: 
  Country: None (occurrence: None)
  Receive Date: 20090728
  Receipt Date: 20081206
  Transmission Date: 20100115
  Serious: Yes (Hospitalization, Other)
  Sender: FDA-Public Use
  Company Number: US-BAYER-200832549GPV

PATIENT
  Age: 31 Year
  Sex: Male

DRUGS (3)
  1. ASPIRIN [Suspect]
     Indication: DRUG USE FOR UNKNOWN INDICATION
     Route: 048
  2. SODIUM BICARBONATE [Suspect]
     Indication: DRUG TOXICITY
     Dosage: DRIP
     Route: 042
  3. SODIUM BICARBONATE [Suspect]
     Dosage: DRIP
     Route: 042

REACTIONS (6)
  - BLOOD PRESSURE INCREASED [None]
  - DRUG TOXICITY [None]
  - HEART RATE INCREASED [None]
  - NAUSEA [None]
  - RESPIRATORY FAILURE [None]
  - TINNITUS [None]
